FAERS Safety Report 10176804 (Version 2)
Quarter: 2014Q3

REPORT INFORMATION
  Report Type: Spontaneous
  Country: US (occurrence: US)
  Receive Date: 20140516
  Receipt Date: 20140804
  Transmission Date: 20150326
  Serious: Yes (Hospitalization)
  Sender: FDA-Public Use
  Company Number: US-BAYER-2014-072830

PATIENT
  Age: 45 Year
  Sex: Female
  Weight: 58.96 kg

DRUGS (2)
  1. MIRENA [Suspect]
     Active Substance: LEVONORGESTREL
     Indication: MENORRHAGIA
  2. MIRENA [Suspect]
     Active Substance: LEVONORGESTREL
     Indication: CONTRACEPTION
     Dosage: 20 MCG/24HR, CONT
     Route: 015
     Dates: start: 20060725, end: 20120424

REACTIONS (8)
  - Post procedural discomfort [None]
  - Device misuse [None]
  - Uterine perforation [None]
  - Medical device pain [None]
  - Ovarian cyst [None]
  - Injury [None]
  - Pain [None]
  - Procedural pain [None]

NARRATIVE: CASE EVENT DATE: 2012
